FAERS Safety Report 22952807 (Version 2)
Quarter: 2023Q4

REPORT INFORMATION
  Report Type: Report from Study
  Country: TH (occurrence: None)
  Receive Date: 20230918
  Receipt Date: 20231117
  Transmission Date: 20240110
  Serious: Yes (Hospitalization, Other)
  Sender: FDA-Public Use
  Company Number: 2023A167644

PATIENT
  Age: 86 Year
  Sex: Female

DRUGS (6)
  1. LYNPARZA [Suspect]
     Active Substance: OLAPARIB
     Indication: BRCA1 gene mutation
     Dosage: 150 MG 2 TABS EVERY 12 HOURRS
     Route: 048
     Dates: start: 20230619, end: 20230807
  2. LYNPARZA [Suspect]
     Active Substance: OLAPARIB
     Indication: Human epidermal growth factor receptor negative
     Dosage: 150 MG 2 TABS EVERY 12 HOURRS
     Route: 048
     Dates: start: 20230619, end: 20230807
  3. LYNPARZA [Suspect]
     Active Substance: OLAPARIB
     Indication: Breast cancer female
     Dosage: 150 MG 2 TABS EVERY 12 HOURRS
     Route: 048
     Dates: start: 20230619, end: 20230807
  4. LYNPARZA [Suspect]
     Active Substance: OLAPARIB
     Indication: BRCA1 gene mutation
     Dosage: 150 MG 3 TABS PER DAY (2 TABLETS MORNING AND 1 TABLET DINNER)
     Route: 048
     Dates: start: 20230807, end: 20231109
  5. LYNPARZA [Suspect]
     Active Substance: OLAPARIB
     Indication: Human epidermal growth factor receptor negative
     Dosage: 150 MG 3 TABS PER DAY (2 TABLETS MORNING AND 1 TABLET DINNER)
     Route: 048
     Dates: start: 20230807, end: 20231109
  6. LYNPARZA [Suspect]
     Active Substance: OLAPARIB
     Indication: Breast cancer female
     Dosage: 150 MG 3 TABS PER DAY (2 TABLETS MORNING AND 1 TABLET DINNER)
     Route: 048
     Dates: start: 20230807, end: 20231109

REACTIONS (11)
  - Full blood count decreased [Unknown]
  - Platelet count decreased [Recovered/Resolved]
  - Sepsis [Recovered/Resolved]
  - Loss of consciousness [Recovered/Resolved]
  - Delirium [Recovered/Resolved]
  - Purulent discharge [Unknown]
  - Wound [Unknown]
  - Wound complication [Unknown]
  - Metastases to bone [Recovered/Resolved]
  - Drug ineffective [Unknown]
  - Off label use [Unknown]

NARRATIVE: CASE EVENT DATE: 20230717
